FAERS Safety Report 14138239 (Version 2)
Quarter: 2017Q4

REPORT INFORMATION
  Report Type: Report from Study
  Country: US (occurrence: IN)
  Receive Date: 20171027
  Receipt Date: 20171214
  Transmission Date: 20180321
  Serious: Yes (Other)
  Sender: FDA-Public Use
  Company Number: US-SUNOVION-2017SUN004645

PATIENT
  Sex: Male
  Weight: 75 kg

DRUGS (8)
  1. INDACATEROL AND GLYCOPYRROLATE [Suspect]
     Active Substance: GLYCOPYRROLATE\INDACATEROL MALEATE
     Indication: CHRONIC OBSTRUCTIVE PULMONARY DISEASE
     Dosage: 1 DF, QD
     Route: 055
  2. AB PHYLLINE [Concomitant]
     Dosage: UNK
  3. AMARYL M [Concomitant]
     Active Substance: GLIMEPIRIDE\METFORMIN
  4. NOVASTAT [Concomitant]
  5. PANTOSEC-D [Concomitant]
  6. BUDECORT [Concomitant]
     Active Substance: BUDESONIDE
     Dosage: UNK
     Dates: start: 20171014
  7. TELMA-H [Concomitant]
  8. URIMAX D [Concomitant]

REACTIONS (3)
  - Glycosylated haemoglobin increased [Unknown]
  - Prostate cancer stage I [Not Recovered/Not Resolved]
  - Dyspnoea [Not Recovered/Not Resolved]
